FAERS Safety Report 11691744 (Version 2)
Quarter: 2015Q4

REPORT INFORMATION
  Report Type: Spontaneous
  Country: US (occurrence: US)
  Receive Date: 20151103
  Receipt Date: 20151124
  Transmission Date: 20160304
  Serious: No
  Sender: FDA-Public Use
  Company Number: US-AMGEN-USASP2015112909

PATIENT
  Age: 38 Year
  Sex: Male

DRUGS (1)
  1. ENBREL [Suspect]
     Active Substance: ETANERCEPT
     Indication: ANKYLOSING SPONDYLITIS
     Dosage: UNK
     Route: 065

REACTIONS (16)
  - Wrong technique in product usage process [Unknown]
  - Haematoma [Unknown]
  - Joint stiffness [Unknown]
  - Joint range of motion decreased [Unknown]
  - Condition aggravated [Unknown]
  - Incorrect route of drug administration [Unknown]
  - Drug effect decreased [Unknown]
  - Underdose [Unknown]
  - Injection site haemorrhage [Unknown]
  - Arthralgia [Unknown]
  - Injection site haematoma [Unknown]
  - Device difficult to use [Unknown]
  - Device malfunction [Unknown]
  - Injection site discomfort [Not Recovered/Not Resolved]
  - Joint swelling [Unknown]
  - Drug dose omission [Unknown]

NARRATIVE: CASE EVENT DATE: 201508
